FAERS Safety Report 6924920-9 (Version None)
Quarter: 2010Q3

REPORT INFORMATION
  Report Type: 
  Country: None (occurrence: None)
  Receive Date: 20100816
  Receipt Date: 20100806
  Transmission Date: 20110219
  Serious: Yes (Death)
  Sender: FDA-Public Use
  Company Number: US-JNJFOC-20091006113

PATIENT
  Sex: Male
  Weight: 99.79 kg

DRUGS (7)
  1. DURAGESIC-100 [Suspect]
     Indication: PAIN
     Route: 062
  2. OXYCODONE [Concomitant]
     Route: 065
  3. VYTORIN [Concomitant]
     Route: 065
  4. LEXAPRO [Concomitant]
     Route: 065
  5. METOPROLOL [Concomitant]
     Route: 065
  6. VALIUM [Concomitant]
     Route: 065
  7. XANAX [Concomitant]
     Route: 065

REACTIONS (6)
  - APNOEA [None]
  - COMA [None]
  - INTENTIONAL DRUG MISUSE [None]
  - NARCOTIC INTOXICATION [None]
  - SOMNOLENCE [None]
  - SUICIDE ATTEMPT [None]
